FAERS Safety Report 20631083 (Version 6)
Quarter: 2024Q2

REPORT INFORMATION
  Report Type: Report from Study
  Country: US (occurrence: US)
  Receive Date: 20220324
  Receipt Date: 20240417
  Transmission Date: 20240716
  Serious: Yes (Other)
  Sender: FDA-Public Use
  Company Number: US-ABBVIE-22K-163-4310711-00

PATIENT
  Age: 52 Year
  Sex: Female
  Weight: 100 kg

DRUGS (4)
  1. RINVOQ [Suspect]
     Active Substance: UPADACITINIB
     Indication: Rheumatoid arthritis
     Dosage: PILL?STRENGTH- 15 MG
     Route: 048
     Dates: start: 202104
  2. RINVOQ [Suspect]
     Active Substance: UPADACITINIB
     Indication: Rheumatoid arthritis
     Dosage: 15 MILLIGRAM
     Route: 048
  3. CORTISONE [Suspect]
     Active Substance: CORTISONE
     Indication: Product used for unknown indication
     Route: 065
  4. PFIZER-BIONTECH COVID-19 VACCINE [Concomitant]
     Active Substance: TOZINAMERAN
     Indication: COVID-19 immunisation
     Dosage: TIME INTERVAL: 1 TOTAL
     Route: 030

REACTIONS (18)
  - Loss of consciousness [Recovered/Resolved]
  - Pain [Not Recovered/Not Resolved]
  - Arthralgia [Recovered/Resolved]
  - Bursitis [Unknown]
  - Dyspnoea [Unknown]
  - Urinary tract infection [Unknown]
  - Anxiety [Recovered/Resolved]
  - Hemiparesis [Recovered/Resolved]
  - Arthralgia [Unknown]
  - Anxiety [Unknown]
  - Arthralgia [Unknown]
  - Diplopia [Unknown]
  - Musculoskeletal stiffness [Unknown]
  - Cold sweat [Unknown]
  - Chest pain [Unknown]
  - Gait disturbance [Unknown]
  - Arthralgia [Recovering/Resolving]
  - Musculoskeletal stiffness [Unknown]

NARRATIVE: CASE EVENT DATE: 20211201
